FAERS Safety Report 11276663 (Version 1)
Quarter: 2015Q3

REPORT INFORMATION
  Report Type: Spontaneous
  Country: US (occurrence: None)
  Receive Date: 20150715
  Receipt Date: 20150715
  Transmission Date: 20151125
  Serious: No
  Sender: FDA-Public Use
  Company Number: None

PATIENT
  Age: 68 Year
  Sex: Female
  Weight: 82.56 kg

DRUGS (7)
  1. MULTIVITAMIN [Concomitant]
     Active Substance: VITAMINS
  2. FLUTICASONE PROPIONATE 50 MCG [Suspect]
     Active Substance: FLUTICASONE PROPIONATE
     Indication: MULTIPLE ALLERGIES
     Dosage: INTRANASAL
     Dates: start: 20150530, end: 20150714
  3. IBUPROFEN. [Concomitant]
     Active Substance: IBUPROFEN
  4. FLUTICASONE PROPIONATE 50 MCG [Suspect]
     Active Substance: FLUTICASONE PROPIONATE
     Indication: SINUS DISORDER
     Dosage: INTRANASAL
     Dates: start: 20150530, end: 20150714
  5. PAROXETINE [Concomitant]
     Active Substance: PAROXETINE\PAROXETINE HYDROCHLORIDE
  6. VITAMIN B [Concomitant]
     Active Substance: VITAMIN B
  7. OMEPRAZOLE. [Concomitant]
     Active Substance: OMEPRAZOLE

REACTIONS (2)
  - Drug effect decreased [None]
  - Product substitution issue [None]
